FAERS Safety Report 13309239 (Version 2)
Quarter: 2017Q2

REPORT INFORMATION
  Report Type: Spontaneous
  Country: US (occurrence: US)
  Receive Date: 20170309
  Receipt Date: 20170412
  Transmission Date: 20170830
  Serious: No
  Sender: FDA-Public Use
  Company Number: US-JNJFOC-20170217519

PATIENT
  Sex: Male

DRUGS (1)
  1. PREZCOBIX [Suspect]
     Active Substance: COBICISTAT\DARUNAVIR ETHANOLATE
     Indication: PRODUCT USED FOR UNKNOWN INDICATION
     Dosage: DARUNAVIR 800 MG AND COBICISTAT 150 MG
     Route: 048

REACTIONS (2)
  - Product use complaint [Unknown]
  - Product physical issue [Unknown]
